FAERS Safety Report 5218812-3 (Version None)
Quarter: 2007Q1

REPORT INFORMATION
  Report Type: 
  Country: None (occurrence: None)
  Receive Date: 20070122
  Receipt Date: 20070122
  Transmission Date: 20070707
  Serious: Yes (Hospitalization)
  Sender: FDA-Public Use
  Company Number: None

PATIENT
  Age: 66 Year
  Sex: Male
  Weight: 61.8 kg

DRUGS (1)
  1. FELODIPINE [Suspect]
     Indication: HYPERTENSION
     Dosage: 5MG  DAILY  PO
     Route: 048
     Dates: start: 20060512, end: 20061116

REACTIONS (7)
  - ASTHENIA [None]
  - DIZZINESS [None]
  - HEART RATE DECREASED [None]
  - HYPERHIDROSIS [None]
  - NAUSEA [None]
  - VERTIGO [None]
  - VOMITING [None]
